FAERS Safety Report 8502925-4 (Version None)
Quarter: 2012Q3

REPORT INFORMATION
  Report Type: 
  Country: None (occurrence: None)
  Receive Date: 20120711
  Receipt Date: 20120706
  Transmission Date: 20120928
  Serious: Yes (Hospitalization)
  Sender: FDA-Public Use
  Company Number: CO-PFIZER INC-2012159493

PATIENT
  Age: 19 Year
  Sex: Male

DRUGS (2)
  1. GENOTROPIN [Suspect]
     Indication: BODY HEIGHT BELOW NORMAL
     Dosage: 2.1 MG, UNK
     Route: 058
     Dates: start: 20090101, end: 20110101
  2. GENOTROPIN [Suspect]
     Indication: DEVELOPMENTAL DELAY

REACTIONS (1)
  - APPENDICITIS [None]
